FAERS Safety Report 6622802-3 (Version None)
Quarter: 2010Q1

REPORT INFORMATION
  Report Type: 
  Country: None (occurrence: None)
  Receive Date: 20100310
  Receipt Date: 20100308
  Transmission Date: 20100710
  Serious: Yes (Life-Threatening)
  Sender: FDA-Public Use
  Company Number: IT-ELI_LILLY_AND_COMPANY-IT200805003183

PATIENT
  Sex: Male
  Weight: 112 kg

DRUGS (8)
  1. PEMETREXED [Suspect]
     Dosage: 1100 MG, DAY ONE EVERY 21 DAYS
     Route: 042
     Dates: start: 20080102
  2. CISPLATIN [Suspect]
     Dosage: 165 MG, DAY 1 EVERY 21 DAY CYCLE
     Route: 042
     Dates: start: 20080102
  3. MEPRAL [Concomitant]
     Indication: PROPHYLAXIS
     Dates: start: 20080401, end: 20080414
  4. PERFALGAN [Concomitant]
     Indication: PAIN
     Dates: start: 20080401, end: 20080413
  5. LASIX [Concomitant]
     Indication: DIURETIC THERAPY
     Dates: start: 20080401, end: 20080410
  6. TAZOCIN [Concomitant]
     Indication: ANTIBIOTIC THERAPY
     Dates: start: 20080407, end: 20080411
  7. KETOROLAC TROMETHAMINE [Concomitant]
     Indication: PAIN
     Dates: start: 20080401, end: 20080414
  8. CEFAZOLIN [Concomitant]
     Dates: start: 20080401, end: 20080407

REACTIONS (1)
  - DEVICE BREAKAGE [None]
